FAERS Safety Report 12894402 (Version 1)
Quarter: 2016Q4

REPORT INFORMATION
  Report Type: Spontaneous
  Country: US (occurrence: US)
  Receive Date: 20161028
  Receipt Date: 20161028
  Transmission Date: 20170207
  Serious: Yes (Other)
  Sender: FDA-Public Use
  Company Number: US-PRINSTON PHARMACEUTICAL INC.-2016PRN00290

PATIENT
  Age: 60 Year
  Sex: Female
  Weight: 67.57 kg

DRUGS (5)
  1. ALLOPURINAL [Concomitant]
     Indication: GOUT
     Dosage: 300 MG, 1X/DAY
  2. LOSARTAN POTASSIUM. [Suspect]
     Active Substance: LOSARTAN POTASSIUM
     Indication: HYPERTENSION
     Dosage: 100 MG, 1X/DAY
     Route: 048
     Dates: start: 20160910, end: 20161008
  3. LEXAPRO [Concomitant]
     Active Substance: ESCITALOPRAM OXALATE
     Dosage: 10 MG, 1X/DAY
  4. HYDROCHLOROTHIAZIDE (HCTZ) [Concomitant]
     Active Substance: HYDROCHLOROTHIAZIDE
     Dosage: 12.5 MG, 1X/DAY
  5. KLONOPIN [Concomitant]
     Active Substance: CLONAZEPAM
     Dosage: 1 MG, 3X/DAY

REACTIONS (8)
  - Hypoaesthesia oral [Recovering/Resolving]
  - Dizziness [Recovering/Resolving]
  - Hypoaesthesia [Recovering/Resolving]
  - Product substitution issue [Recovered/Resolved]
  - Intentional product misuse [Unknown]
  - Head discomfort [Recovering/Resolving]
  - Malaise [Recovering/Resolving]
  - Drug ineffective [Recovering/Resolving]

NARRATIVE: CASE EVENT DATE: 20160910
